FAERS Safety Report 17583164 (Version 2)
Quarter: 2020Q1

REPORT INFORMATION
  Report Type: Report from Study
  Country: None (occurrence: US)
  Receive Date: 20200325
  Receipt Date: 20200330
  Transmission Date: 20200409
  Serious: Yes (Other)
  Sender: FDA-Public Use
  Company Number: US-ABBVIE-20K-163-3289906-00

PATIENT
  Age: 62 Year
  Sex: Female
  Weight: 52.21 kg

DRUGS (1)
  1. HUMIRA [Suspect]
     Active Substance: ADALIMUMAB
     Indication: RHEUMATOID ARTHRITIS
     Route: 058
     Dates: start: 201905, end: 202002

REACTIONS (12)
  - Pruritus [Recovered/Resolved]
  - Intentional product misuse [Unknown]
  - Hyperaesthesia [Unknown]
  - Tinnitus [Recovering/Resolving]
  - Urticaria [Recovered/Resolved]
  - Dry skin [Unknown]
  - Skin exfoliation [Unknown]
  - Ear infection [Unknown]
  - Swelling [Recovered/Resolved]
  - Deafness [Recovering/Resolving]
  - Bacterial infection [Recovered/Resolved]
  - Vertigo [Recovered/Resolved]

NARRATIVE: CASE EVENT DATE: 201908
